FAERS Safety Report 18079633 (Version 2)
Quarter: 2020Q3

REPORT INFORMATION
  Report Type: Report from Study
  Country: FR (occurrence: FR)
  Receive Date: 20200728
  Receipt Date: 20200905
  Transmission Date: 20201103
  Serious: Yes (Other)
  Sender: FDA-Public Use
  Company Number: NVSC2020FR209534

PATIENT
  Age: 75 Year
  Sex: Female
  Weight: 66 kg

DRUGS (6)
  1. BYL719 [Suspect]
     Active Substance: ALPELISIB
     Indication: BREAST CANCER
     Dosage: 300 MG, QD  (THE DOSE DURING THE LAST INTAKE WAS 100 MG).
     Route: 048
     Dates: start: 20200618, end: 20200701
  2. SOLUPRED [Concomitant]
     Indication: PRODUCT USED FOR UNKNOWN INDICATION
     Dosage: 2 IN THE MORNING
     Route: 065
     Dates: start: 20200704, end: 20200710
  3. BYL719 [Suspect]
     Active Substance: ALPELISIB
     Dosage: 300 MG, QD  (THE DOSE DURING THE LAST INTAKE WAS 100 MG).
     Route: 048
     Dates: start: 20200706, end: 20200707
  4. BYL719 [Suspect]
     Active Substance: ALPELISIB
     Dosage: 100 MG, QD
     Route: 048
     Dates: start: 20200712, end: 20200713
  5. XYZALL [Concomitant]
     Active Substance: LEVOCETIRIZINE DIHYDROCHLORIDE
     Indication: PRODUCT USED FOR UNKNOWN INDICATION
     Dosage: 1 AND THEN 3 PER DAY
     Route: 065
     Dates: start: 20200627, end: 20200707
  6. ACETAMINOPHEN. [Concomitant]
     Active Substance: ACETAMINOPHEN
     Indication: PRODUCT USED FOR UNKNOWN INDICATION
     Dosage: UNK
     Route: 065

REACTIONS (17)
  - Skin exfoliation [Recovered/Resolved]
  - Abdominal pain [Recovered/Resolved]
  - Malaise [Recovered/Resolved]
  - Rash [Not Recovered/Not Resolved]
  - Skin reaction [Recovered/Resolved]
  - Dermatitis exfoliative generalised [Not Recovered/Not Resolved]
  - Hyperthermia [Not Recovered/Not Resolved]
  - Arthralgia [Recovered/Resolved]
  - Visual impairment [Recovered/Resolved]
  - Dysphagia [Recovered/Resolved]
  - General physical health deterioration [Recovered/Resolved]
  - Pruritus [Recovered/Resolved]
  - Chills [Recovered/Resolved]
  - Cough [Recovered/Resolved]
  - Pain [Recovered/Resolved]
  - Diarrhoea [Recovered/Resolved]
  - Pyrexia [Recovered/Resolved]

NARRATIVE: CASE EVENT DATE: 20200625
